FAERS Safety Report 8318376-1 (Version None)
Quarter: 2012Q2

REPORT INFORMATION
  Report Type: 
  Country: None (occurrence: None)
  Receive Date: 20120427
  Receipt Date: 20120425
  Transmission Date: 20120825
  Serious: Yes (Hospitalization, Other)
  Sender: FDA-Public Use
  Company Number: FR-ROCHE-797163

PATIENT
  Sex: Male
  Weight: 68 kg

DRUGS (8)
  1. PEMETREXED DISODIUM [Suspect]
     Indication: NON-SMALL CELL LUNG CANCER
     Dosage: FREQUENCY: 3 SEM
     Route: 042
     Dates: start: 20101224, end: 20110204
  2. IMOVANE [Concomitant]
     Route: 048
  3. AVASTIN [Suspect]
     Indication: NON-SMALL CELL LUNG CANCER
     Dosage: FREQUENCY: 3 SEM.
     Route: 042
     Dates: start: 20101224, end: 20110204
  4. FOLIC ACID [Concomitant]
     Dosage: FREQUENCY: 1CP/JR
     Route: 048
  5. KEPPRA [Concomitant]
     Route: 048
  6. CISPLATIN [Suspect]
     Indication: NON-SMALL CELL LUNG CANCER
     Dosage: FREQUENCY: 3 SEM
     Route: 042
     Dates: start: 20101224, end: 20110204
  7. LASIX [Concomitant]
     Route: 048
  8. PREDNISOLONE SODIUM [Concomitant]
     Dosage: FREQUENCY: 1CP/JR
     Route: 048

REACTIONS (1)
  - PNEUMOTHORAX [None]
